FAERS Safety Report 19008469 (Version 1)
Quarter: 2021Q1

REPORT INFORMATION
  Report Type: Spontaneous
  Country: US (occurrence: US)
  Receive Date: 20210316
  Receipt Date: 20210316
  Transmission Date: 20210420
  Serious: Yes (Other)
  Sender: FDA-Public Use
  Company Number: US-APOTEX-2021AP005353

PATIENT
  Age: 61 Year
  Sex: Male
  Weight: 104.3 kg

DRUGS (9)
  1. TETRACYCLINE [Suspect]
     Active Substance: TETRACYCLINE
     Indication: FACIAL PARALYSIS
     Dosage: 100 MILLIGRAM, BID
     Route: 048
     Dates: start: 20210102
  2. ACYCLOVIR. [Suspect]
     Active Substance: ACYCLOVIR
     Indication: FACIAL PARALYSIS
     Dosage: 400 MILLIGRAM, 5 TIMES A DAY
     Route: 048
  3. PREDNISONE. [Suspect]
     Active Substance: PREDNISONE
     Indication: FACIAL PARALYSIS
     Dosage: 20 MILLIGRAM, TID
     Route: 048
     Dates: start: 20210102
  4. NORVASC [Concomitant]
     Active Substance: AMLODIPINE BESYLATE
     Indication: PRODUCT USED FOR UNKNOWN INDICATION
     Dosage: 10 MILLIGRAM, QD
     Route: 065
  5. PROTONIX [Concomitant]
     Active Substance: PANTOPRAZOLE SODIUM
     Indication: PRODUCT USED FOR UNKNOWN INDICATION
     Dosage: 40 MILLIGRAM, QD
     Route: 065
  6. BYDUREON [Concomitant]
     Active Substance: EXENATIDE
     Indication: PRODUCT USED FOR UNKNOWN INDICATION
     Dosage: 2 MILLIGRAM, Q.WK.
     Route: 058
  7. HYDROCHLOROTHIAZIDE. [Concomitant]
     Active Substance: HYDROCHLOROTHIAZIDE
     Indication: PRODUCT USED FOR UNKNOWN INDICATION
     Dosage: 12.5 MILLIGRAM, QD
     Route: 065
  8. SOLU?MEDROL [Suspect]
     Active Substance: METHYLPREDNISOLONE SODIUM SUCCINATE
     Indication: FACIAL PARALYSIS
     Dosage: 4 MG DOSE PACK, AT 6 TABLETS (60 MG) THE FIRST DAY
     Route: 065
  9. LISINOPRIL. [Concomitant]
     Active Substance: LISINOPRIL
     Indication: PRODUCT USED FOR UNKNOWN INDICATION
     Dosage: 40 MILLIGRAM, QD
     Route: 065

REACTIONS (5)
  - Blood glucose increased [Not Recovered/Not Resolved]
  - Facial paralysis [Not Recovered/Not Resolved]
  - Drug ineffective for unapproved indication [Unknown]
  - Condition aggravated [Not Recovered/Not Resolved]
  - Drug ineffective [Unknown]

NARRATIVE: CASE EVENT DATE: 202101
